FAERS Safety Report 7041282-X (Version None)
Quarter: 2010Q4

REPORT INFORMATION
  Report Type: 
  Country: None (occurrence: None)
  Receive Date: 20101013
  Receipt Date: 20101006
  Transmission Date: 20110411
  Serious: Yes (Hospitalization)
  Sender: FDA-Public Use
  Company Number: PHHO2010IL14255

PATIENT
  Sex: Female
  Weight: 73 kg

DRUGS (1)
  1. ICL670A ICL+DISTAB [Suspect]
     Indication: IRON OVERLOAD

REACTIONS (6)
  - ATRIAL FIBRILLATION [None]
  - ATRIOVENTRICULAR BLOCK FIRST DEGREE [None]
  - BRADYCARDIA [None]
  - CARDIAC SIDEROSIS [None]
  - PALPITATIONS [None]
  - SUPRAVENTRICULAR TACHYCARDIA [None]
